FAERS Safety Report 5857288-X (Version None)
Quarter: 2008Q3

REPORT INFORMATION
  Report Type: 
  Country: None (occurrence: None)
  Receive Date: 20080822
  Receipt Date: 20080811
  Transmission Date: 20090109
  Serious: Yes (Other)
  Sender: FDA-Public Use
  Company Number: SPV1-2008-01715

PATIENT
  Age: 13 Year
  Sex: Male
  Weight: 40.8 kg

DRUGS (3)
  1. VYVANSE [Suspect]
     Indication: ATTENTION DEFICIT/HYPERACTIVITY DISORDER
     Dosage: 50 MG, 1X/DAY:QD, ORAL
     Route: 048
     Dates: start: 20080411
  2. CLONIDINE [Concomitant]
  3. MELATONIN (MELATONIN) [Concomitant]

REACTIONS (6)
  - AGGRESSION [None]
  - DISTURBANCE IN ATTENTION [None]
  - INSOMNIA [None]
  - IRRITABILITY [None]
  - OFF LABEL USE [None]
  - SUICIDAL BEHAVIOUR [None]
